FAERS Safety Report 7166237-6 (Version None)
Quarter: 2010Q4

REPORT INFORMATION
  Report Type: 
  Country: None (occurrence: None)
  Receive Date: 20101216
  Receipt Date: 20101207
  Transmission Date: 20110411
  Serious: Yes (Life-Threatening, Other)
  Sender: FDA-Public Use
  Company Number: DE-CELGENEUS-062-21880-10062943

PATIENT
  Age: 58 Year
  Sex: Male
  Weight: 75 kg

DRUGS (2)
  1. REVLIMID [Suspect]
     Route: 048
     Dates: start: 20100331, end: 20100410
  2. DEXAMETHASONE [Concomitant]
     Route: 065
     Dates: start: 20100331

REACTIONS (3)
  - ACUTE HEPATIC FAILURE [None]
  - HYPERTENSION [None]
  - PHLEBITIS [None]
